FAERS Safety Report 23851226 (Version 2)
Quarter: 2024Q2

REPORT INFORMATION
  Report Type: Spontaneous
  Country: FR (occurrence: FR)
  Receive Date: 20240514
  Receipt Date: 20240621
  Transmission Date: 20240716
  Serious: Yes (Hospitalization, Other)
  Sender: FDA-Public Use
  Company Number: FR-AFSSAPS-AM2024000366

PATIENT
  Age: 31 Year
  Sex: Female
  Weight: 120 kg

DRUGS (1)
  1. AMOXICILLIN [Suspect]
     Active Substance: AMOXICILLIN
     Indication: Infection
     Dosage: 3 GRAM, ONCE A DAY
     Route: 048
     Dates: start: 20240403, end: 20240407

REACTIONS (2)
  - Acute generalised exanthematous pustulosis [Recovered/Resolved]
  - Rash pustular [Recovered/Resolved]

NARRATIVE: CASE EVENT DATE: 20240405
